FAERS Safety Report 6561703-6 (Version None)
Quarter: 2010Q1

REPORT INFORMATION
  Report Type: 
  Country: None (occurrence: None)
  Receive Date: 20100130
  Receipt Date: 20091023
  Transmission Date: 20100710
  Serious: No
  Sender: FDA-Public Use
  Company Number: US-ABBOTT-09P-163-0604868-00

PATIENT
  Sex: Female
  Weight: 61.29 kg

DRUGS (5)
  1. HUMIRA [Suspect]
     Indication: RHEUMATOID ARTHRITIS
     Dates: start: 20090701
  2. RED YEAST RICE [Concomitant]
     Indication: BLOOD CHOLESTEROL
     Dates: start: 20080901
  3. RED YEAST RICE [Concomitant]
  4. RED YEAST RICE [Concomitant]
  5. METHELPREDNISONE [Concomitant]
     Indication: BURSITIS
     Dates: start: 20090901

REACTIONS (4)
  - EPISTAXIS [None]
  - FATIGUE [None]
  - HEPATIC ENZYME INCREASED [None]
  - NASOPHARYNGITIS [None]
